FAERS Safety Report 16475234 (Version 1)
Quarter: 2019Q2

REPORT INFORMATION
  Report Type: Spontaneous
  Country: US (occurrence: US)
  Receive Date: 20190625
  Receipt Date: 20190625
  Transmission Date: 20190711
  Serious: No
  Sender: FDA-Public Use
  Company Number: US-SA-2019SA168099

PATIENT
  Age: 73 Year
  Sex: Female

DRUGS (1)
  1. PRALUENT [Suspect]
     Active Substance: ALIROCUMAB
     Indication: LOW DENSITY LIPOPROTEIN
     Dosage: 150 MG, QOW
     Dates: start: 20190605

REACTIONS (5)
  - Rhinorrhoea [Recovering/Resolving]
  - Gastrointestinal pain [Recovering/Resolving]
  - Faeces discoloured [Recovering/Resolving]
  - Abnormal faeces [Recovering/Resolving]
  - Body temperature increased [Recovering/Resolving]

NARRATIVE: CASE EVENT DATE: 20190607
